FAERS Safety Report 19332244 (Version 1)
Quarter: 2021Q2

REPORT INFORMATION
  Report Type: Spontaneous
  Country: AU (occurrence: AU)
  Receive Date: 20210529
  Receipt Date: 20210529
  Transmission Date: 20210717
  Serious: Yes (Death)
  Sender: FDA-Public Use
  Company Number: AU-JNJFOC-20210554073

PATIENT
  Age: 45 Year
  Sex: Female

DRUGS (1)
  1. TRABECTEDIN [Suspect]
     Active Substance: TRABECTEDIN
     Indication: SYNOVIAL SARCOMA
     Dosage: LAST DOSE ON 10?SEP?2020; INTENDED DOSE OF 2.5 MG (2 VIALS OF 1 MG, AND 3 VIALS OF 0,25 MG).
     Route: 042

REACTIONS (1)
  - Death [Fatal]
